FAERS Safety Report 14223915 (Version 2)
Quarter: 2018Q1

REPORT INFORMATION
  Report Type: Report from Study
  Country: JP (occurrence: JP)
  Receive Date: 20171126
  Receipt Date: 20180126
  Transmission Date: 20180508
  Serious: Yes (Death)
  Sender: FDA-Public Use
  Company Number: JP-UCBSA-2017046881

PATIENT
  Sex: Female
  Weight: 28 kg

DRUGS (1)
  1. LEVETIRACETAM. [Suspect]
     Active Substance: LEVETIRACETAM
     Indication: FOCAL DYSCOGNITIVE SEIZURES
     Dosage: 1500 MG, 2X/DAY (BID)
     Route: 042
     Dates: start: 20161225, end: 20170108

REACTIONS (1)
  - Respiratory failure [Fatal]
